FAERS Safety Report 22539204 (Version 1)
Quarter: 2023Q2

REPORT INFORMATION
  Report Type: Spontaneous
  Country: IN (occurrence: IN)
  Receive Date: 20230609
  Receipt Date: 20230609
  Transmission Date: 20230722
  Serious: Yes (Other)
  Sender: FDA-Public Use
  Company Number: IN-BRISTOL-MYERS SQUIBB COMPANY-2022-088998

PATIENT
  Age: 29 Year
  Sex: Male

DRUGS (1)
  1. TRIAMCINOLONE ACETONIDE [Suspect]
     Active Substance: TRIAMCINOLONE ACETONIDE
     Indication: Alopecia
     Route: 065
     Dates: start: 202011

REACTIONS (3)
  - Mycobacterium abscessus infection [Recovered/Resolved]
  - Abscess [Recovered/Resolved]
  - Intentional product use issue [Unknown]
